FAERS Safety Report 21301700 (Version 1)
Quarter: 2022Q3

REPORT INFORMATION
  Report Type: Spontaneous
  Country: US (occurrence: None)
  Receive Date: 20220906
  Receipt Date: 20220906
  Transmission Date: 20221027
  Serious: Yes (Other)
  Sender: FDA-Public Use
  Company Number: None

PATIENT
  Age: 75 Year
  Sex: Female
  Weight: 91.35 kg

DRUGS (1)
  1. LEXISCAN [Suspect]
     Active Substance: REGADENOSON
     Indication: Cardiac stress test
     Dosage: OTHER FREQUENCY : ONCE IVP;?
     Route: 040
     Dates: start: 20220818, end: 20220818

REACTIONS (1)
  - Seizure [None]

NARRATIVE: CASE EVENT DATE: 20220818
